FAERS Safety Report 7269367-3 (Version None)
Quarter: 2011Q1

REPORT INFORMATION
  Report Type: 
  Country: None (occurrence: None)
  Receive Date: 20110202
  Receipt Date: 20110119
  Transmission Date: 20110831
  Serious: Yes (Hospitalization, Other)
  Sender: FDA-Public Use
  Company Number: US-ELI_LILLY_AND_COMPANY-US201006004707

PATIENT
  Sex: Female

DRUGS (11)
  1. PAXIL [Concomitant]
     Dosage: 60 MG, DAILY (1/D)
  2. CALCIUM + VITAMIN D [Concomitant]
     Dosage: 250 MG, DAILY (1/D)
  3. VITAMIN D [Concomitant]
     Dosage: 50000 IU, WEEKLY (1/W)
  4. TRAZODONE HCL [Concomitant]
     Dosage: 1 D/F, EACH EVENING
  5. FORTEO [Suspect]
     Indication: OSTEOPOROSIS
     Dosage: 20 UG, DAILY (1/D)
     Dates: start: 20100401
  6. LORTAB [Concomitant]
     Dosage: 2 D/F, 3/D
  7. DIOVAN [Concomitant]
     Dosage: 160 MG, DAILY (1/D)
  8. DARVOCET-N 100 [Concomitant]
     Dosage: 2 D/F, 3/D
  9. DETROL LA [Concomitant]
     Dosage: 4 MG, DAILY (1/D)
  10. FORTEO [Suspect]
     Dosage: 20 UG, DAILY (1/D)
     Dates: start: 20100401
  11. ALENDRONATE SODIUM [Concomitant]
     Dosage: 70 MG, WEEKLY (1/W)

REACTIONS (3)
  - UPPER LIMB FRACTURE [None]
  - FALL [None]
  - MALAISE [None]
